FAERS Safety Report 5579513-5 (Version None)
Quarter: 2008Q1

REPORT INFORMATION
  Report Type: 
  Country: None (occurrence: None)
  Receive Date: 20080102
  Receipt Date: 20071227
  Transmission Date: 20080703
  Serious: Yes (Hospitalization)
  Sender: FDA-Public Use
  Company Number: US-GENENTECH-246843

PATIENT
  Age: 53 Year
  Sex: Female
  Weight: 67 kg

DRUGS (13)
  1. BEVACIZUMAB [Suspect]
     Indication: BREAST CANCER
     Dosage: 15 MG/KG, UNK
     Route: 042
     Dates: start: 20070411
  2. DOCETAXEL [Suspect]
     Indication: BREAST CANCER
     Dosage: 75 MG/M2, UNK
     Route: 042
     Dates: start: 20070411
  3. CYCLOPHOSPHAMIDE [Suspect]
     Indication: BREAST CANCER
     Dosage: 500 MG/M2, UNK
     Route: 042
     Dates: start: 20070411
  4. DOXORUBICIN HCL [Suspect]
     Indication: BREAST CANCER
     Dosage: 50 MG/M2, UNK
     Route: 042
     Dates: start: 20070411
  5. ASACOL [Concomitant]
     Indication: DRUG USE FOR UNKNOWN INDICATION
  6. ENTOCORT EC [Concomitant]
     Indication: DRUG USE FOR UNKNOWN INDICATION
  7. EFFEXOR [Concomitant]
     Indication: DEPRESSION
  8. TRAZODONE HCL [Concomitant]
     Indication: DEPRESSION
  9. SYNTHROID [Concomitant]
     Indication: HYPOTHYROIDISM
  10. ATENOLOL [Concomitant]
     Indication: HYPERTENSION
  11. ATIVAN [Concomitant]
     Indication: DRUG USE FOR UNKNOWN INDICATION
  12. MAXALT [Concomitant]
     Indication: DRUG USE FOR UNKNOWN INDICATION
  13. LEVSINEX [Concomitant]
     Indication: DRUG USE FOR UNKNOWN INDICATION

REACTIONS (1)
  - HYPOVOLAEMIA [None]
